FAERS Safety Report 14112173 (Version 2)
Quarter: 2017Q4

REPORT INFORMATION
  Report Type: Report from Study
  Country: US (occurrence: BR)
  Receive Date: 20171020
  Receipt Date: 20171031
  Transmission Date: 20180321
  Serious: Yes (Death, Hospitalization, Other)
  Sender: FDA-Public Use
  Company Number: US-SUNOVION-2017SUN004544

PATIENT
  Sex: Female
  Weight: 49 kg

DRUGS (1)
  1. INDACATEROL AND GLYCOPYRROLATE [Suspect]
     Active Substance: GLYCOPYRROLATE\INDACATEROL MALEATE
     Indication: BRONCHIECTASIS
     Dosage: 1 DF, (BRONCHIECTASIS BROMIDE 50 UJ / INDACATEROL 110 UG), UNK
     Route: 055

REACTIONS (3)
  - Product use in unapproved indication [Unknown]
  - Myocardial infarction [Recovering/Resolving]
  - Death [Fatal]
